FAERS Safety Report 8560001-9 (Version None)
Quarter: 2012Q3

REPORT INFORMATION
  Report Type: 
  Country: None (occurrence: None)
  Receive Date: 20120802
  Receipt Date: 20120723
  Transmission Date: 20120928
  Serious: Yes (Death, Hospitalization, Other)
  Sender: FDA-Public Use
  Company Number: IT-CELGENEUS-083-50794-12050784

PATIENT
  Sex: Male

DRUGS (7)
  1. IDROXYUREA [Concomitant]
     Indication: SPLENOMEGALY
     Route: 065
  2. IDROXYUREA [Concomitant]
     Indication: LEUKOCYTOSIS
     Route: 065
     Dates: start: 20071211, end: 20081006
  3. VIDAZA [Suspect]
     Dosage: THRID OF INITIAL DOSE
     Route: 058
     Dates: start: 20110526
  4. RH-EPO [Concomitant]
     Route: 065
     Dates: start: 20080610, end: 20090804
  5. MERCAPTOPURINE [Concomitant]
     Indication: LEUKOCYTOSIS
     Route: 065
     Dates: start: 20090811, end: 20100629
  6. VIDAZA [Suspect]
     Dosage: 75 MILLIGRAM/SQ. METER
     Route: 058
     Dates: start: 20100705, end: 20101102
  7. MERCAPTOPURINE [Concomitant]
     Indication: SPLENOMEGALY
     Route: 065

REACTIONS (6)
  - ANAEMIA [None]
  - LEUKOPENIA [None]
  - THROMBOCYTOPENIA [None]
  - CHRONIC MYELOMONOCYTIC LEUKAEMIA [None]
  - GASTROINTESTINAL HAEMORRHAGE [None]
  - NEUTROPHIL COUNT DECREASED [None]
